FAERS Safety Report 5904563-6 (Version None)
Quarter: 2008Q4

REPORT INFORMATION
  Report Type: 
  Country: None (occurrence: None)
  Receive Date: 20081001
  Receipt Date: 20080917
  Transmission Date: 20090506
  Serious: Yes (Hospitalization)
  Sender: FDA-Public Use
  Company Number: ES-ELI_LILLY_AND_COMPANY-ES200809004273

PATIENT
  Age: 82 Year
  Sex: Female

DRUGS (3)
  1. FORTEO [Suspect]
     Indication: OSTEOPOROSIS
     Dosage: 20 UG, UNKNOWN
     Route: 058
     Dates: start: 20070701, end: 20080906
  2. LEVOTHROID [Concomitant]
     Indication: THYROID DISORDER
     Dosage: UNK, UNKNOWN
     Route: 065
  3. DAFLON [Concomitant]
     Indication: CARDIAC DISORDER
     Dosage: UNK, UNKNOWN
     Route: 065

REACTIONS (3)
  - CARDIAC DISORDER [None]
  - PNEUMONIA [None]
  - RENAL FAILURE [None]
